FAERS Safety Report 19749695 (Version 1)
Quarter: 2021Q3

REPORT INFORMATION
  Report Type: Spontaneous
  Country: KR (occurrence: KR)
  Receive Date: 20210826
  Receipt Date: 20210826
  Transmission Date: 20211014
  Serious: Yes (Other)
  Sender: FDA-Public Use
  Company Number: KR-SUN PHARMACEUTICAL INDUSTRIES LTD-2021RR-309252

PATIENT
  Age: 58 Year
  Sex: Female

DRUGS (8)
  1. SPIRONOLACTONE. [Suspect]
     Active Substance: SPIRONOLACTONE
     Indication: MYOPATHY
     Dosage: 25 MILLIGRAM, DAILY
     Route: 065
  2. LOSARTAN. [Suspect]
     Active Substance: LOSARTAN
     Indication: MYOPATHY
     Dosage: 50 MILLIGRAM, DAILY
     Route: 065
  3. METHOTREXATE. [Suspect]
     Active Substance: METHOTREXATE
     Indication: MYOPATHY
     Dosage: 2.5?12.5 MILLIGRAM WEEKLY
     Route: 065
  4. BISOPROLOL [Suspect]
     Active Substance: BISOPROLOL
     Indication: MYOPATHY
     Dosage: 2.5 MILLIGRAM, DAILY
     Route: 065
  5. PREDNISOLONE. [Suspect]
     Active Substance: PREDNISOLONE
     Indication: VENTRICULAR TACHYCARDIA
     Dosage: 10?20 MILLIGRAM, DAILY
     Route: 065
  6. METHYLPREDNISOLONE. [Suspect]
     Active Substance: METHYLPREDNISOLONE
     Indication: VENTRICULAR TACHYCARDIA
     Dosage: 125 MILLIGRAM
     Route: 065
  7. AMIODARONE [Suspect]
     Active Substance: AMIODARONE
     Indication: MYOPATHY
     Dosage: 200 MILLIGRAM, DAILY
     Route: 065
  8. FUROSEMIDE. [Suspect]
     Active Substance: FUROSEMIDE
     Indication: MYOPATHY
     Dosage: 40 MILLIGRAM, DAILY
     Route: 065

REACTIONS (5)
  - Therapeutic product effect incomplete [Unknown]
  - Drug ineffective [Unknown]
  - Condition aggravated [Unknown]
  - Sinus bradycardia [Unknown]
  - Pyrexia [Unknown]
